FAERS Safety Report 12359274 (Version 1)
Quarter: 2016Q2

REPORT INFORMATION
  Report Type: Spontaneous
  Country: US (occurrence: None)
  Receive Date: 20160511
  Receipt Date: 20160511
  Transmission Date: 20160815
  Serious: Yes (Hospitalization)
  Sender: FDA-Public Use
  Company Number: None

PATIENT
  Age: 8 Year
  Sex: Male
  Weight: 25.7 kg

DRUGS (5)
  1. DOXORUBICIN HYDROCHLORIDE. [Suspect]
     Active Substance: DOXORUBICIN HYDROCHLORIDE
     Dates: end: 20160425
  2. ONCASPAR [Suspect]
     Active Substance: PEGASPARGASE
     Dates: end: 20160428
  3. VINCRISTINE SULFATE. [Suspect]
     Active Substance: VINCRISTINE SULFATE
     Dates: end: 20160425
  4. METHOTREXATE [Suspect]
     Active Substance: METHOTREXATE
     Dates: end: 20160411
  5. DEXAMETHASONE. [Suspect]
     Active Substance: DEXAMETHASONE
     Dates: end: 20160501

REACTIONS (10)
  - Tachycardia [None]
  - Septic shock [None]
  - Hypotension [None]
  - Tachypnoea [None]
  - Mental status changes [None]
  - Pyrexia [None]
  - Pseudomonas test positive [None]
  - Mucosal inflammation [None]
  - Hypoglycaemia [None]
  - Neutropenia [None]

NARRATIVE: CASE EVENT DATE: 20160502
